FAERS Safety Report 6368509-1 (Version None)
Quarter: 2009Q3

REPORT INFORMATION
  Report Type: 
  Country: None (occurrence: None)
  Receive Date: 20090922
  Receipt Date: 20090914
  Transmission Date: 20100115
  Serious: Yes (Hospitalization)
  Sender: FDA-Public Use
  Company Number: B0591538A

PATIENT
  Sex: Male

DRUGS (7)
  1. CLAVAMOX [Suspect]
     Indication: OTITIS MEDIA
     Dosage: 1.3G TWICE PER DAY
     Route: 048
     Dates: start: 20090729, end: 20090805
  2. ZESULAN [Concomitant]
     Indication: OTITIS MEDIA
     Route: 048
     Dates: start: 20090729, end: 20090805
  3. ZITHROMAX [Concomitant]
     Route: 048
  4. MEIACT [Concomitant]
     Indication: UPPER RESPIRATORY TRACT INFLAMMATION
     Route: 048
     Dates: start: 20090727, end: 20090729
  5. RINDERON [Concomitant]
     Indication: UPPER RESPIRATORY TRACT INFLAMMATION
     Route: 048
     Dates: start: 20090727, end: 20090729
  6. CODEINE PHOSPHATE [Concomitant]
     Indication: UPPER RESPIRATORY TRACT INFLAMMATION
     Route: 048
     Dates: start: 20090727, end: 20090729
  7. MUCODYNE [Concomitant]
     Indication: OTITIS MEDIA
     Route: 048
     Dates: start: 20090727, end: 20090805

REACTIONS (5)
  - DRUG ERUPTION [None]
  - ERYTHEMA MULTIFORME [None]
  - PRURITUS [None]
  - PYREXIA [None]
  - RASH GENERALISED [None]
